FAERS Safety Report 8473346-8 (Version None)
Quarter: 2012Q2

REPORT INFORMATION
  Report Type: 
  Country: None (occurrence: None)
  Receive Date: 20120628
  Receipt Date: 20120619
  Transmission Date: 20120825
  Serious: Yes (Hospitalization)
  Sender: FDA-Public Use
  Company Number: US-BIOGENIDEC-2012BI020327

PATIENT
  Age: 63 Year
  Sex: Female

DRUGS (24)
  1. ASPIRIN [Concomitant]
     Route: 048
  2. FUROSEMIDE [Concomitant]
     Route: 048
  3. GOTU KOLA [Concomitant]
     Route: 048
  4. MAGNESIUM OXIDE [Concomitant]
     Route: 048
  5. TIZANIDINE HYDROCHLORIDE [Concomitant]
     Route: 048
  6. VITAMIN A [Concomitant]
     Route: 048
  7. TYSABRI [Suspect]
     Route: 042
     Dates: start: 20110718
  8. VITAMIN B COMPLEX CAP [Concomitant]
     Route: 048
  9. GLUCOSAMINE AND CHONDROITIN WITH MSM [Concomitant]
     Route: 048
  10. BACLOFEN [Concomitant]
     Route: 048
  11. MELOXICAM [Concomitant]
     Route: 048
  12. FISH OIL [Concomitant]
     Route: 048
  13. CITALOPRAM HYDROBROMIDE [Concomitant]
     Route: 048
  14. MIRALAX [Concomitant]
     Route: 048
  15. SANCTURA XR [Concomitant]
     Route: 048
  16. TYSABRI [Suspect]
     Indication: MULTIPLE SCLEROSIS
     Route: 042
     Dates: start: 20070219, end: 20100315
  17. VITAMIN D [Concomitant]
     Route: 048
  18. ASCORBIC ACID [Concomitant]
     Route: 048
  19. BACLOFEN [Concomitant]
     Route: 048
  20. VICODIN ES [Concomitant]
     Route: 048
  21. CALCIUM CARBONATE [Concomitant]
     Route: 048
  22. LEVOTHYROXINE [Concomitant]
     Route: 048
  23. SIMVASTATIN [Concomitant]
     Route: 048
  24. VITAMIN E [Concomitant]
     Route: 048

REACTIONS (6)
  - MULTIPLE SCLEROSIS RELAPSE [None]
  - HYPOKALAEMIA [None]
  - OROPHARYNGEAL PAIN [None]
  - URINARY TRACT INFECTION ENTEROCOCCAL [None]
  - VENOUS INJURY [None]
  - DEVICE RELATED INFECTION [None]
